FAERS Safety Report 11106539 (Version 3)
Quarter: 2016Q1

REPORT INFORMATION
  Report Type: Report from Study
  Country: IT (occurrence: IT)
  Receive Date: 20150512
  Receipt Date: 20160127
  Transmission Date: 20160525
  Serious: No
  Sender: FDA-Public Use
  Company Number: PHHY2014IT090751

PATIENT
  Age: 33 Year
  Sex: Female

DRUGS (1)
  1. TASIGNA [Suspect]
     Active Substance: NILOTINIB
     Indication: EXPOSURE VIA FATHER
     Dosage: FETAL DRUG EXPOSURE VIA FATHER: 600 MG, DAILY
     Route: 050

REACTIONS (3)
  - Normal newborn [Unknown]
  - Exposure via father [Unknown]
  - Delivery [Unknown]

NARRATIVE: CASE EVENT DATE: 20150306
